FAERS Safety Report 20093002 (Version 2)
Quarter: 2022Q1

REPORT INFORMATION
  Report Type: Report from Study
  Country: CR (occurrence: CR)
  Receive Date: 20211120
  Receipt Date: 20220125
  Transmission Date: 20220423
  Serious: Yes (Other)
  Sender: FDA-Public Use
  Company Number: CR-NOVARTISPH-NVSC2021CR264660

PATIENT
  Age: 50 Year
  Sex: Female

DRUGS (4)
  1. EXFORGE [Suspect]
     Active Substance: AMLODIPINE BESYLATE\VALSARTAN
     Indication: Product used for unknown indication
     Dosage: 160/5 MG (2 YEARS APPROXIMATELY)
     Route: 065
  2. EXFORGE [Suspect]
     Active Substance: AMLODIPINE BESYLATE\VALSARTAN
     Dosage: 1.5 DOSAGE FORM (160/5MG), QD (TABLET AND A HALF)
     Route: 065
     Dates: start: 202103
  3. EXFORGE HCT [Suspect]
     Active Substance: AMLODIPINE BESYLATE\HYDROCHLOROTHIAZIDE\VALSARTAN
     Indication: Product used for unknown indication
     Dosage: 5/160/25 MG (2 YEARS APPROXIMATELY)
     Route: 065
  4. EXFORGE HCT [Suspect]
     Active Substance: AMLODIPINE BESYLATE\HYDROCHLOROTHIAZIDE\VALSARTAN
     Dosage: 5/160/25 MG (3 YEARS AGO)
     Route: 065
     Dates: end: 202103

REACTIONS (3)
  - Arrhythmia [Unknown]
  - Thyroid disorder [Unknown]
  - Wrong technique in product usage process [Unknown]
